FAERS Safety Report 7168364-6 (Version None)
Quarter: 2010Q4

REPORT INFORMATION
  Report Type: 
  Country: None (occurrence: None)
  Receive Date: 20101216
  Receipt Date: 20101203
  Transmission Date: 20110411
  Serious: Yes (Hospitalization)
  Sender: FDA-Public Use
  Company Number: FR-GENENTECH-311166

PATIENT
  Age: 60 Year
  Sex: Female

DRUGS (1)
  1. MABTHERA [Suspect]
     Indication: PSORIATIC ARTHROPATHY
     Dosage: 1 DF, UNK
     Route: 042
     Dates: start: 20101021, end: 20101109

REACTIONS (5)
  - CHILLS [None]
  - CHOLESTASIS [None]
  - CYTOLYTIC HEPATITIS [None]
  - DIARRHOEA [None]
  - JAUNDICE [None]
